FAERS Safety Report 5479656-0 (Version None)
Quarter: 2007Q4

REPORT INFORMATION
  Report Type: 
  Country: None (occurrence: None)
  Receive Date: 20071008
  Receipt Date: 20071004
  Transmission Date: 20080405
  Serious: Yes (Hospitalization)
  Sender: FDA-Public Use
  Company Number: B0477843A

PATIENT
  Age: 32 Year
  Sex: Female
  Weight: 107 kg

DRUGS (6)
  1. LAMICTAL [Suspect]
     Indication: EPILEPSY
     Route: 048
     Dates: start: 20061012
  2. DEPAKENE [Concomitant]
     Indication: EPILEPSY
     Dosage: 1800MG PER DAY
     Route: 048
     Dates: start: 20041117
  3. PHENYTOIN SODIUM CAP [Concomitant]
     Indication: EPILEPSY
     Dosage: 300MG PER DAY
     Dates: start: 20030917
  4. PRIMIDONE [Concomitant]
     Indication: EPILEPSY
     Dosage: 375MG PER DAY
     Route: 048
     Dates: start: 20041020
  5. SERENACE [Concomitant]
     Dosage: 6MG PER DAY
     Route: 048
     Dates: start: 20030917
  6. LEVOTOMIN [Concomitant]
     Indication: INSOMNIA
     Dosage: 5MG PER DAY
     Route: 048
     Dates: start: 20061012

REACTIONS (1)
  - INTERVERTEBRAL DISC PROTRUSION [None]
